FAERS Safety Report 8123982-3 (Version None)
Quarter: 2012Q1

REPORT INFORMATION
  Report Type: 
  Country: None (occurrence: None)
  Receive Date: 20120209
  Receipt Date: 20120126
  Transmission Date: 20120608
  Serious: Yes (Death, Hospitalization)
  Sender: FDA-Public Use
  Company Number: FR-AMGEN-FRASP2011039536

PATIENT
  Age: 74 Year
  Sex: Female
  Weight: 60 kg

DRUGS (6)
  1. NEXIUM [Concomitant]
     Dosage: UNK
  2. ENBREL [Suspect]
     Indication: PSORIATIC ARTHROPATHY
     Dosage: 25 MG, QWK
     Dates: start: 20101001, end: 20110701
  3. PREDNISONE TAB [Suspect]
     Dosage: 5 MG, 1X/DAY
     Dates: start: 20080101
  4. LASIX [Concomitant]
  5. ACARBOSE [Concomitant]
     Dosage: UNK
  6. ATORVASTATIN [Concomitant]

REACTIONS (4)
  - COMA [None]
  - MYCOTIC ANEURYSM [None]
  - ENDOCARDITIS [None]
  - STREPTOCOCCAL SEPSIS [None]
